FAERS Safety Report 14189817 (Version 2)
Quarter: 2017Q4

REPORT INFORMATION
  Report Type: Spontaneous
  Country: US (occurrence: US)
  Receive Date: 20171115
  Receipt Date: 20171117
  Transmission Date: 20180321
  Serious: No
  Sender: FDA-Public Use
  Company Number: US-PFIZER INC-2017486347

PATIENT
  Age: 42 Year
  Sex: Female

DRUGS (1)
  1. XELJANZ XR [Suspect]
     Active Substance: TOFACITINIB CITRATE
     Dosage: 11 MG, ALTERNATE DAY (EVERY OTHER DAY FOR ONE WEEK)

REACTIONS (6)
  - Nervousness [Unknown]
  - Product use issue [Unknown]
  - Hyperhidrosis [Unknown]
  - Headache [Unknown]
  - Tremor [Unknown]
  - Anxiety [Unknown]
